FAERS Safety Report 22309644 (Version 1)
Quarter: 2023Q2

REPORT INFORMATION
  Report Type: Spontaneous
  Country: US (occurrence: None)
  Receive Date: 20230510
  Receipt Date: 20230510
  Transmission Date: 20230721
  Serious: Yes (Other)
  Sender: FDA-Public Use
  Company Number: None

PATIENT
  Sex: 0

DRUGS (1)
  1. FAMOTIDINE [Suspect]
     Active Substance: FAMOTIDINE
     Indication: Dyspepsia
     Dosage: FREQUENCY : TWICE A DAY;?
     Route: 048
     Dates: start: 20230504, end: 20230510

REACTIONS (4)
  - Product substitution issue [None]
  - Therapeutic product effect decreased [None]
  - Product size issue [None]
  - Product counterfeit [None]

NARRATIVE: CASE EVENT DATE: 20230508
